FAERS Safety Report 5343531-2 (Version None)
Quarter: 2007Q2

REPORT INFORMATION
  Report Type: 
  Country: None (occurrence: None)
  Receive Date: 20070604
  Receipt Date: 20070526
  Transmission Date: 20071010
  Serious: Yes (Other)
  Sender: FDA-Public Use
  Company Number: PHBS2007BE08633

PATIENT
  Age: 70 Year
  Sex: Male

DRUGS (5)
  1. ZOMETA [Suspect]
     Indication: MULTIPLE MYELOMA
     Dosage: 4 MG, UNK
     Route: 042
     Dates: start: 20050101
  2. VINCRISTINE + ADRIAMYCIN + DEXAMETHASONE [Concomitant]
  3. ENDOXAN [Concomitant]
  4. NEUPOGEN [Concomitant]
  5. MELPHALAN [Concomitant]

REACTIONS (5)
  - DENTAL FISTULA [None]
  - OSTEONECROSIS [None]
  - TOOTH ABSCESS [None]
  - TOOTH EXTRACTION [None]
  - WOUND DEBRIDEMENT [None]
